FAERS Safety Report 6649229-2 (Version None)
Quarter: 2010Q1

REPORT INFORMATION
  Report Type: 
  Country: None (occurrence: None)
  Receive Date: 20100324
  Receipt Date: 20100316
  Transmission Date: 20100710
  Serious: Yes (Hospitalization, Other)
  Sender: FDA-Public Use
  Company Number: US-NAPPMUNDI-USA_2009_0037292

PATIENT
  Sex: Male

DRUGS (4)
  1. OXYCONTIN [Suspect]
     Indication: DRUG ABUSE
     Dosage: 80 MG, SEE TEXT
  2. SUBUTEX [Suspect]
     Indication: DRUG ABUSE
  3. XANAX [Concomitant]
  4. FLEXERIL [Concomitant]

REACTIONS (23)
  - ARTHRALGIA [None]
  - COUGH [None]
  - DEHYDRATION [None]
  - DENTAL DISCOMFORT [None]
  - DIARRHOEA [None]
  - DRUG ABUSE [None]
  - DRUG DEPENDENCE [None]
  - DRUG WITHDRAWAL SYNDROME [None]
  - EAR PAIN [None]
  - EMOTIONAL DISORDER [None]
  - FEELING COLD [None]
  - HALLUCINATION [None]
  - MYALGIA [None]
  - MYDRIASIS [None]
  - OVERDOSE [None]
  - PAIN [None]
  - PARALYSIS [None]
  - RESPIRATORY RATE DECREASED [None]
  - RHINORRHOEA [None]
  - SCREAMING [None]
  - TOOTH DISCOLOURATION [None]
  - VOMITING [None]
  - WEIGHT DECREASED [None]
